FAERS Safety Report 6906048-7 (Version None)
Quarter: 2010Q3

REPORT INFORMATION
  Report Type: 
  Country: None (occurrence: None)
  Receive Date: 20100803
  Receipt Date: 20100803
  Transmission Date: 20110219
  Serious: No
  Sender: FDA-Public Use
  Company Number: None

PATIENT

DRUGS (2)
  1. GADOLINIUM [Suspect]
     Dates: start: 19910101
  2. GADOLINIUM [Suspect]
     Dates: start: 20100625

REACTIONS (8)
  - ATRIAL FIBRILLATION [None]
  - DIARRHOEA [None]
  - FATIGUE [None]
  - MOBILITY DECREASED [None]
  - MUSCULAR WEAKNESS [None]
  - PRURITUS GENERALISED [None]
  - RENAL IMPAIRMENT [None]
  - VISION BLURRED [None]
